FAERS Safety Report 6058215-5 (Version None)
Quarter: 2009Q1

REPORT INFORMATION
  Report Type: 
  Country: None (occurrence: None)
  Receive Date: 20090130
  Receipt Date: 20090123
  Transmission Date: 20090719
  Serious: Yes (Other)
  Sender: FDA-Public Use
  Company Number: JP-JNJFOC-20081206722

PATIENT
  Age: 15 Year
  Sex: Female

DRUGS (3)
  1. TOPINA [Suspect]
     Indication: EPILEPSY
     Route: 051
  2. PRIMIDONE [Concomitant]
     Indication: EPILEPSY
     Route: 048
  3. MYSTAN [Concomitant]
     Indication: EPILEPSY
     Route: 048

REACTIONS (2)
  - HALLUCINATION, AUDITORY [None]
  - HALLUCINATION, VISUAL [None]
